FAERS Safety Report 19100484 (Version 5)
Quarter: 2024Q1

REPORT INFORMATION
  Report Type: Spontaneous
  Country: IT (occurrence: IT)
  Receive Date: 20210407
  Receipt Date: 20240328
  Transmission Date: 20240410
  Serious: Yes (Other)
  Sender: FDA-Public Use
  Company Number: IT-CELLTRION INC.-2021IT004315

PATIENT

DRUGS (9)
  1. RITUXIMAB [Suspect]
     Active Substance: RITUXIMAB
     Indication: Transplant rejection
     Dosage: 700 MG
     Route: 042
  2. RITUXIMAB [Suspect]
     Active Substance: RITUXIMAB
     Indication: Transplant rejection
     Dosage: 700 MG
     Route: 042
  3. MYCOPHENOLIC ACID [Suspect]
     Active Substance: MYCOPHENOLIC ACID
     Indication: Transplant rejection
     Route: 065
  4. METHYLPREDNISOLONE [Suspect]
     Active Substance: METHYLPREDNISOLONE
     Indication: Transplant rejection
     Route: 065
  5. CYCLOSPORINE [Suspect]
     Active Substance: CYCLOSPORINE
     Indication: Transplant rejection
     Route: 065
  6. EVEROLIMUS [Suspect]
     Active Substance: EVEROLIMUS
     Indication: Transplant rejection
     Route: 065
  7. RALTEGRAVIR [Concomitant]
     Active Substance: RALTEGRAVIR
  8. MARAVIROC [Concomitant]
     Active Substance: MARAVIROC
  9. LAMIVUDINE [Concomitant]
     Active Substance: LAMIVUDINE

REACTIONS (5)
  - CD4 lymphocytes decreased [Unknown]
  - CD8 lymphocytes decreased [Unknown]
  - Leukopenia [Unknown]
  - Neutropenia [Recovered/Resolved]
  - Intentional product use issue [Unknown]
